FAERS Safety Report 16134817 (Version 1)
Quarter: 2019Q1

REPORT INFORMATION
  Report Type: Report from Study
  Country: US (occurrence: US)
  Receive Date: 20190329
  Receipt Date: 20190329
  Transmission Date: 20190418
  Serious: Yes (Hospitalization, Other)
  Sender: FDA-Public Use
  Company Number: US-TEVA-2018-US-924585

PATIENT
  Sex: Female

DRUGS (1)
  1. COPAXONE [Suspect]
     Active Substance: GLATIRAMER ACETATE
     Indication: MULTIPLE SCLEROSIS
     Route: 058
     Dates: start: 20180429, end: 20180630

REACTIONS (8)
  - Blood pressure increased [Unknown]
  - Neurogenic shock [Unknown]
  - Hyperhidrosis [Unknown]
  - Dyspnoea [Unknown]
  - Palpitations [Unknown]
  - Product quality issue [Unknown]
  - Burning sensation [Unknown]
  - Heart rate increased [Unknown]
